FAERS Safety Report 7780285-4 (Version None)
Quarter: 2011Q3

REPORT INFORMATION
  Report Type: 
  Country: None (occurrence: None)
  Receive Date: 20110927
  Receipt Date: 20110923
  Transmission Date: 20111222
  Serious: Yes (Other)
  Sender: FDA-Public Use
  Company Number: DE-PFIZER INC-2011226733

PATIENT
  Age: 57 Year
  Sex: Female

DRUGS (1)
  1. VARENICLINE TARTRATE [Suspect]

REACTIONS (4)
  - AGORAPHOBIA [None]
  - RESTLESSNESS [None]
  - DYSPNOEA [None]
  - DEPRESSION [None]
